FAERS Safety Report 23243384 (Version 3)
Quarter: 2023Q4

REPORT INFORMATION
  Report Type: Spontaneous
  Country: US (occurrence: None)
  Receive Date: 20231130
  Receipt Date: 20231228
  Transmission Date: 20240109
  Serious: Yes (Hospitalization)
  Sender: FDA-Public Use
  Company Number: US-ROCHE-3463535

PATIENT
  Sex: Male

DRUGS (1)
  1. HEMLIBRA [Suspect]
     Active Substance: EMICIZUMAB-KXWH
     Indication: Factor VIII deficiency
     Dosage: STRENGTH : 105MG/0.7 ML
     Route: 058
     Dates: start: 202306

REACTIONS (3)
  - Haemorrhage [Unknown]
  - Pancreatitis [Unknown]
  - Fall [Unknown]

NARRATIVE: CASE EVENT DATE: 20231112
